FAERS Safety Report 12531414 (Version 1)
Quarter: 2016Q3

REPORT INFORMATION
  Report Type: Spontaneous
  Country: US (occurrence: US)
  Receive Date: 20160706
  Receipt Date: 20160706
  Transmission Date: 20161109
  Serious: No
  Sender: FDA-Public Use
  Company Number: US-MALLINCKRODT-T201602152

PATIENT
  Age: 91 Year
  Sex: Female
  Weight: 51 kg

DRUGS (11)
  1. OXYCODONE [Suspect]
     Active Substance: OXYCODONE
     Indication: ARTHRITIS
  2. CALCIUM [Concomitant]
     Active Substance: CALCIUM
  3. OXYCODONE [Suspect]
     Active Substance: OXYCODONE
     Indication: SPINAL COLUMN STENOSIS
     Dosage: ONE TABLET TWICE DAILY
     Route: 048
  4. OXYCODONE [Suspect]
     Active Substance: OXYCODONE
     Indication: OSTEOPOROSIS
  5. ALEVE [Concomitant]
     Active Substance: NAPROXEN SODIUM
     Indication: BREAKTHROUGH PAIN
     Dosage: UNK
     Dates: start: 201604
  6. ASPIRIN 81 [Concomitant]
     Active Substance: ASPIRIN
     Dosage: 81MG
  7. SIMVASTATIN. [Concomitant]
     Active Substance: SIMVASTATIN
  8. ALPRAZOLAM. [Concomitant]
     Active Substance: ALPRAZOLAM
  9. MIRTAZAPINE. [Concomitant]
     Active Substance: MIRTAZAPINE
  10. LEVOTHYROXINE. [Concomitant]
     Active Substance: LEVOTHYROXINE
  11. VESICARE [Concomitant]
     Active Substance: SOLIFENACIN SUCCINATE

REACTIONS (3)
  - Drug screen negative [Not Recovered/Not Resolved]
  - Drug effect decreased [Not Recovered/Not Resolved]
  - Intentional product use issue [Not Recovered/Not Resolved]

NARRATIVE: CASE EVENT DATE: 201604
